FAERS Safety Report 6891424-1 (Version None)
Quarter: 2010Q3

REPORT INFORMATION
  Report Type: 
  Country: None (occurrence: None)
  Receive Date: 20100731
  Receipt Date: 20071224
  Transmission Date: 20110219
  Serious: No
  Sender: FDA-Public Use
  Company Number: US-PFIZER INC-2007060975

PATIENT
  Age: 84 Year
  Sex: Female
  Weight: 59.1 kg

DRUGS (2)
  1. NORVASC [Suspect]
     Indication: HYPERTENSION
  2. AVALIDE [Concomitant]
     Indication: HYPERTENSION

REACTIONS (2)
  - BLOOD PRESSURE INADEQUATELY CONTROLLED [None]
  - OEDEMA PERIPHERAL [None]
